FAERS Safety Report 5214870-0 (Version None)
Quarter: 2007Q1

REPORT INFORMATION
  Report Type: 
  Country: None (occurrence: None)
  Receive Date: 20070122
  Receipt Date: 20070122
  Transmission Date: 20070707
  Serious: Yes (Other)
  Sender: FDA-Public Use
  Company Number: None

PATIENT
  Sex: Female

DRUGS (5)
  1. REVLIMID [Suspect]
     Indication: MULTIPLE MYELOMA
     Dosage: 10MG DAILY FOR 21 DAYS PO
     Route: 048
     Dates: start: 20061212, end: 20061222
  2. LACTULOSE [Concomitant]
  3. WARFARIN SODIUM [Concomitant]
  4. TRAZODONE HCL [Concomitant]
  5. RENAGEL [Concomitant]

REACTIONS (3)
  - ARTHRALGIA [None]
  - INSOMNIA [None]
  - MALAISE [None]
